FAERS Safety Report 18719367 (Version 1)
Quarter: 2021Q1

REPORT INFORMATION
  Report Type: Spontaneous
  Country: FR (occurrence: FR)
  Receive Date: 20210108
  Receipt Date: 20210108
  Transmission Date: 20210419
  Serious: Yes (Death, Other)
  Sender: FDA-Public Use
  Company Number: FR-BAUSCH-BL-2020-039214

PATIENT

DRUGS (10)
  1. ERYTHROMYCIN. [Suspect]
     Active Substance: ERYTHROMYCIN
     Indication: PRODUCT USED FOR UNKNOWN INDICATION
     Route: 065
  2. RIFAMPICIN [Suspect]
     Active Substance: RIFAMPIN
     Indication: HIP ARTHROPLASTY
     Route: 065
  3. FUSIDIC ACID [Suspect]
     Active Substance: FUSIDIC ACID
     Indication: ARTHRITIS INFECTIVE
     Dosage: UNKNOWN
     Route: 065
  4. FUSIDIC ACID [Suspect]
     Active Substance: FUSIDIC ACID
     Indication: OSTEOMYELITIS
     Dosage: UNKNOWN
     Route: 065
  5. RIFAMPICIN [Suspect]
     Active Substance: RIFAMPIN
     Indication: DEVICE RELATED INFECTION
     Dosage: 600 MG, BID (TWICE A DAY)
     Route: 065
  6. CLINDAMYCIN. [Suspect]
     Active Substance: CLINDAMYCIN
     Indication: DEVICE RELATED INFECTION
     Route: 065
  7. OXACILLIN [Suspect]
     Active Substance: OXACILLIN SODIUM
     Indication: OSTEOMYELITIS
     Dosage: UNKNOWN
     Route: 065
  8. OXACILLIN [Suspect]
     Active Substance: OXACILLIN SODIUM
     Indication: ARTHRITIS INFECTIVE
     Dosage: UNKNOWN
     Route: 065
  9. CLINDAMYCIN. [Suspect]
     Active Substance: CLINDAMYCIN
     Indication: HIP ARTHROPLASTY
     Dosage: 600 MG
     Route: 048
  10. ERYTHROMYCIN. [Suspect]
     Active Substance: ERYTHROMYCIN
     Dosage: UNK
     Route: 065

REACTIONS (4)
  - Arthritis infective [Fatal]
  - Toxic skin eruption [Unknown]
  - Pathogen resistance [Unknown]
  - Drug ineffective [Unknown]
